FAERS Safety Report 17673173 (Version 1)
Quarter: 2020Q2

REPORT INFORMATION
  Report Type: Spontaneous
  Country: US (occurrence: US)
  Receive Date: 20200415
  Receipt Date: 20200415
  Transmission Date: 20200713
  Serious: Yes (Life-Threatening)
  Sender: FDA-Public Use
  Company Number: US-FRESENIUS KABI-FK202003795

PATIENT
  Age: 66 Year
  Sex: Female

DRUGS (1)
  1. ADENOSINE INJECTION (MANUFACTURER UNKNOWN) [Suspect]
     Active Substance: ADENOSINE
     Indication: PRODUCT USED FOR UNKNOWN INDICATION
     Dosage: UNKNOWN
     Route: 022

REACTIONS (1)
  - Ventricular fibrillation [Recovered/Resolved]
